FAERS Safety Report 8300462 (Version 3)
Quarter: 2012Q4

REPORT INFORMATION
  Report Type: 
  Country: AU (occurrence: AU)
  Receive Date: 20111219
  Receipt Date: 20120928
  Transmission Date: 20130627
  Serious: Yes (Hospitalization, Other)
  Sender: FDA-Public Use
  Company Number: PHHY2011AU107536

PATIENT
  Age: 68 None
  Sex: Male

DRUGS (2)
  1. SANDOSTATIN LAR [Suspect]
     Indication: CARCINOID SYNDROME
     Dosage: 30 mg, UNK
     Route: 030
  2. SANDOSTATIN LAR [Suspect]
     Dosage: UNK mg, UNK
     Dates: start: 20120915

REACTIONS (2)
  - Device related infection [Recovered/Resolved]
  - Neoplasm [Not Recovered/Not Resolved]
